FAERS Safety Report 7469208-5 (Version None)
Quarter: 2011Q2

REPORT INFORMATION
  Report Type: 
  Country: None (occurrence: None)
  Receive Date: 20110429
  Receipt Date: 20110415
  Transmission Date: 20111010
  Serious: Yes (Other)
  Sender: FDA-Public Use
  Company Number: DSU-2011-02751

PATIENT
  Sex: Male
  Weight: 108.8633 kg

DRUGS (2)
  1. AZOR [Suspect]
     Indication: HYPERTENSION
     Dosage: 10/40MG (QD), PER ORAL 5/20MG (QD) PER ORAL
     Route: 048
  2. HYDRALAZINE (HYDRALAZINE) (HYDRALAZINE) [Concomitant]

REACTIONS (6)
  - GASTRIC ULCER [None]
  - WRONG TECHNIQUE IN DRUG USAGE PROCESS [None]
  - GASTRITIS [None]
  - JOINT SWELLING [None]
  - OEDEMA PERIPHERAL [None]
  - DYSPHAGIA [None]
